FAERS Safety Report 6157241-5 (Version None)
Quarter: 2009Q2

REPORT INFORMATION
  Report Type: 
  Country: None (occurrence: None)
  Receive Date: 20090416
  Receipt Date: 20090410
  Transmission Date: 20091009
  Serious: Yes (Hospitalization)
  Sender: FDA-Public Use
  Company Number: US-CELGENEUS-163-21880-09030496

PATIENT
  Sex: Male
  Weight: 79.45 kg

DRUGS (22)
  1. REVLIMID [Suspect]
     Route: 048
     Dates: start: 20090301, end: 20090325
  2. REVLIMID [Suspect]
     Route: 048
     Dates: end: 20090303
  3. REVLIMID [Suspect]
     Dosage: 20 - 15 MG
     Route: 048
     Dates: start: 20081021, end: 20090119
  4. VORINOSTAT [Suspect]
     Route: 048
     Dates: start: 20090301, end: 20090325
  5. VORINOSTAT [Suspect]
     Dosage: 400 MG- 300 MG
     Route: 048
     Dates: end: 20090119
  6. VORINOSTAT [Suspect]
     Route: 048
     Dates: start: 20081021, end: 20081027
  7. DEXAMETHASONE TAB [Suspect]
     Route: 048
     Dates: start: 20090301, end: 20090325
  8. DEXAMETHASONE TAB [Suspect]
     Route: 048
     Dates: end: 20090303
  9. DEXAMETHASONE TAB [Suspect]
     Route: 048
     Dates: start: 20081021, end: 20090120
  10. AZITHROMYCIN [Suspect]
     Route: 065
     Dates: start: 20090301
  11. LUNESTA [Concomitant]
     Indication: DRUG USE FOR UNKNOWN INDICATION
     Route: 065
     Dates: start: 20071001
  12. PEPCID AC [Concomitant]
     Indication: DRUG USE FOR UNKNOWN INDICATION
     Route: 065
  13. INDOMETHACIN [Concomitant]
     Indication: DRUG USE FOR UNKNOWN INDICATION
     Route: 065
     Dates: start: 20070701
  14. ASPIRIN [Concomitant]
     Indication: DRUG USE FOR UNKNOWN INDICATION
     Route: 065
     Dates: start: 20081021
  15. OMEGA-3 MARINE TRIGLYCERIDES [Concomitant]
     Indication: DRUG USE FOR UNKNOWN INDICATION
     Route: 065
  16. MONTELUKAST SODIUM [Concomitant]
     Indication: DRUG USE FOR UNKNOWN INDICATION
     Route: 065
     Dates: start: 20080901
  17. SILDENAFIL CITRATE [Concomitant]
     Indication: DRUG USE FOR UNKNOWN INDICATION
     Route: 065
     Dates: start: 20080801
  18. VITAMIN B COMPLEX CAP [Concomitant]
     Indication: DRUG USE FOR UNKNOWN INDICATION
     Route: 065
  19. FAMOTIDINE [Concomitant]
     Indication: DRUG USE FOR UNKNOWN INDICATION
     Route: 065
  20. ALLOPURINOL [Concomitant]
     Indication: DRUG USE FOR UNKNOWN INDICATION
     Route: 065
     Dates: start: 20081021
  21. SUNGULAIR [Concomitant]
     Indication: DRUG USE FOR UNKNOWN INDICATION
     Route: 065
     Dates: start: 20080901
  22. COLCHICINE [Concomitant]
     Indication: DRUG USE FOR UNKNOWN INDICATION
     Route: 065
     Dates: start: 20070601

REACTIONS (1)
  - DIARRHOEA [None]
